FAERS Safety Report 6370866-7 (Version None)
Quarter: 2009Q3

REPORT INFORMATION
  Report Type: 
  Country: None (occurrence: None)
  Receive Date: 20090923
  Receipt Date: 20080129
  Transmission Date: 20100115
  Serious: No
  Sender: FDA-Public Use
  Company Number: US-ASTRAZENECA-2006UW24919

PATIENT
  Age: 37 Year
  Sex: Female
  Weight: 84.4 kg

DRUGS (13)
  1. SEROQUEL [Suspect]
     Indication: DEPRESSION
     Route: 048
     Dates: start: 20000101, end: 20060101
  2. SEROQUEL [Suspect]
     Indication: BIPOLAR DISORDER
     Route: 048
     Dates: start: 20000101, end: 20060101
  3. SEROQUEL [Suspect]
     Indication: POST-TRAUMATIC STRESS DISORDER
     Route: 048
     Dates: start: 20000101, end: 20060101
  4. SEROQUEL [Suspect]
     Route: 048
     Dates: start: 20060302
  5. SEROQUEL [Suspect]
     Route: 048
     Dates: start: 20060302
  6. SEROQUEL [Suspect]
     Route: 048
     Dates: start: 20060302
  7. ABILIFY [Concomitant]
     Route: 048
     Dates: start: 20070901
  8. GEODON [Concomitant]
     Route: 048
     Dates: start: 20000101
  9. HALOPERIDOL [Concomitant]
  10. RISPERDAL [Concomitant]
     Route: 048
     Dates: start: 20060101, end: 20070101
  11. ZOCOR [Concomitant]
  12. KLONOPIN [Concomitant]
     Dosage: 0.5 MG IN THE MORNING, AFTERNOON AND 1 MG AT NIGHT
     Route: 048
  13. LIPITOR [Concomitant]

REACTIONS (4)
  - BLOOD CHOLESTEROL INCREASED [None]
  - BLOOD TRIGLYCERIDES INCREASED [None]
  - DIABETES MELLITUS [None]
  - OBESITY [None]
